FAERS Safety Report 23994559 (Version 3)
Quarter: 2025Q1

REPORT INFORMATION
  Report Type: Report from Study
  Country: US (occurrence: US)
  Receive Date: 20240620
  Receipt Date: 20250201
  Transmission Date: 20250408
  Serious: Yes (Other)
  Sender: ABBVIE
  Company Number: US-ABBVIE-5804804

PATIENT
  Sex: Male

DRUGS (1)
  1. HUMIRA [Suspect]
     Active Substance: ADALIMUMAB
     Indication: Crohn^s disease
     Route: 058
     Dates: start: 20170902

REACTIONS (4)
  - Pulmonary mass [Recovering/Resolving]
  - Lung hernia [Recovered/Resolved]
  - Pneumonia [Not Recovered/Not Resolved]
  - Oropharyngeal pain [Recovering/Resolving]
